FAERS Safety Report 25873049 (Version 1)
Quarter: 2025Q4

REPORT INFORMATION
  Report Type: Spontaneous
  Country: BR (occurrence: BR)
  Receive Date: 20251002
  Receipt Date: 20251002
  Transmission Date: 20260118
  Serious: Yes (Hospitalization)
  Sender: BOEHRINGER INGELHEIM
  Company Number: BR-Komodo Health-a23aa00000AQEOAAA5

PATIENT
  Age: 58 Year
  Sex: Female
  Weight: 53 kg

DRUGS (9)
  1. SPIRIVA [Suspect]
     Active Substance: TIOTROPIUM BROMIDE MONOHYDRATE
     Indication: Dyspnoea
  2. OLODATEROL HYDROCHLORIDE\TIOTROPIUM BROMIDE MONOHYDRATE [Suspect]
     Active Substance: OLODATEROL HYDROCHLORIDE\TIOTROPIUM BROMIDE MONOHYDRATE
     Indication: Dyspnoea
     Dosage: FORM STRENGTH: 2.5 MICROGRAMS+2.5 MICROGRAMS.?4 PUFFS PER DAY
     Dates: start: 202509
  3. BEROTEC [Suspect]
     Active Substance: FENOTEROL HYDROBROMIDE
     Indication: Product used for unknown indication
     Dosage: DROPS
  4. ESOMEPRAZOLE MAGNESIUM [Suspect]
     Active Substance: ESOMEPRAZOLE MAGNESIUM
     Indication: Product used for unknown indication
  5. ALBUTEROL [Suspect]
     Active Substance: ALBUTEROL
     Indication: Product used for unknown indication
  6. Esomeprazol magnesico [Concomitant]
     Indication: Gastrointestinal disorder
     Dosage: FASTING IN THE MORNING.
  7. ATENOLOL [Concomitant]
     Active Substance: ATENOLOL
     Indication: Product used for unknown indication
     Dosage: ONE TABLET IN THE MORNING AND ONE IN THE EVENING.
  8. PURAN [Concomitant]
     Active Substance: LEVOTHYROXINE SODIUM
     Indication: Product used for unknown indication
     Dosage: FASTING IN THE MORNING.
  9. Buclina [Concomitant]
     Indication: Decreased appetite

REACTIONS (14)
  - Thrombosis [Unknown]
  - Pneumonia [Unknown]
  - COVID-19 [Unknown]
  - Angiopathy [Unknown]
  - Depression [Unknown]
  - Extra dose administered [Unknown]
  - Dyspnoea [Unknown]
  - Memory impairment [Unknown]
  - Condition aggravated [Unknown]
  - Tremor [Unknown]
  - Blood pressure abnormal [Unknown]
  - Thyroid disorder [Unknown]
  - Diabetes mellitus [Unknown]
  - Blood cholesterol abnormal [Unknown]

NARRATIVE: CASE EVENT DATE: 20020101
